FAERS Safety Report 23804209 (Version 1)
Quarter: 2024Q2

REPORT INFORMATION
  Report Type: Spontaneous
  Country: PL (occurrence: PL)
  Receive Date: 20240501
  Receipt Date: 20240501
  Transmission Date: 20240716
  Serious: Yes (Life-Threatening)
  Sender: FDA-Public Use
  Company Number: None

PATIENT
  Age: 47 Year
  Sex: Male

DRUGS (2)
  1. ALTEPLASE [Suspect]
     Active Substance: ALTEPLASE
     Indication: Product used for unknown indication
     Dosage: FORM STRENGTH: 50 MILLIGRAM
     Route: 042
     Dates: start: 20230718, end: 20230718
  2. ALTEPLASE [Suspect]
     Active Substance: ALTEPLASE
     Dosage: FORM STRENGTH: 20 MILLIGRAM
     Route: 042
     Dates: start: 20230718, end: 20230718

REACTIONS (3)
  - Tongue oedema [Recovering/Resolving]
  - Endotracheal intubation [Recovering/Resolving]
  - Respiratory failure [Recovering/Resolving]

NARRATIVE: CASE EVENT DATE: 20230718
